FAERS Safety Report 12052709 (Version 1)
Quarter: 2016Q1

REPORT INFORMATION
  Report Type: Report from Study
  Country: US (occurrence: US)
  Receive Date: 20160209
  Receipt Date: 20160209
  Transmission Date: 20160526
  Serious: Yes (Other)
  Sender: FDA-Public Use
  Company Number: US-ASTRAZENECA-2016SE01899

PATIENT
  Sex: Female
  Weight: 70.3 kg

DRUGS (8)
  1. CARBAMAZEPINE. [Concomitant]
     Active Substance: CARBAMAZEPINE
     Indication: SEIZURE
     Route: 048
  2. ATORVASTATIN [Concomitant]
     Active Substance: ATORVASTATIN
     Indication: BLOOD CHOLESTEROL ABNORMAL
  3. SYMBICORT [Suspect]
     Active Substance: BUDESONIDE\FORMOTEROL FUMARATE DIHYDRATE
     Indication: CHRONIC OBSTRUCTIVE PULMONARY DISEASE
     Dosage: 160/4.5 MCG 2 PUFFS IN THE MORNING AND 2 PUFFS AT NIGHT
     Route: 055
     Dates: start: 2015
  4. BYSTOLIC [Concomitant]
     Active Substance: NEBIVOLOL HYDROCHLORIDE
     Indication: BLOOD PRESSURE ABNORMAL
     Route: 048
  5. CLONAZEPAM. [Concomitant]
     Active Substance: CLONAZEPAM
     Indication: AGITATION
     Dosage: 0.5 MG THREE TIMES A DAY AS NEEDED
     Route: 048
  6. AMLODIPINE BESYLATE. [Concomitant]
     Active Substance: AMLODIPINE BESYLATE
     Route: 048
  7. ANASTROZOLE. [Suspect]
     Active Substance: ANASTROZOLE
     Indication: NEOPLASM MALIGNANT
     Route: 048
  8. HYDRALAZINE [Concomitant]
     Active Substance: HYDRALAZINE HYDROCHLORIDE
     Indication: BLOOD PRESSURE ABNORMAL
     Route: 048

REACTIONS (5)
  - Intentional product misuse [Unknown]
  - Breast cancer female [Recovered/Resolved]
  - Osteoporosis [Not Recovered/Not Resolved]
  - Body height decreased [Not Recovered/Not Resolved]
  - Vocal cord disorder [Unknown]
